FAERS Safety Report 5647021-9 (Version None)
Quarter: 2008Q1

REPORT INFORMATION
  Report Type: 
  Country: None (occurrence: None)
  Receive Date: 20080303
  Receipt Date: 20080229
  Transmission Date: 20080703
  Serious: Yes (Disabling)
  Sender: FDA-Public Use
  Company Number: B0510247A

PATIENT
  Age: 57 Year
  Sex: Female
  Weight: 143 kg

DRUGS (13)
  1. AVANDAMET [Suspect]
     Route: 048
     Dates: start: 20051026, end: 20080218
  2. ROSIGLITAZONE [Concomitant]
     Route: 048
     Dates: start: 20040505, end: 20051026
  3. METFORMIN HCL [Concomitant]
     Dosage: 1700MG PER DAY
     Route: 048
     Dates: start: 20031204, end: 20051026
  4. ASPIRIN [Concomitant]
     Dosage: 75MG PER DAY
  5. LEVOTHYROXINE SODIUM [Concomitant]
     Dosage: 25MCG PER DAY
  6. LEVOTHYROXINE SODIUM [Concomitant]
     Dosage: 50MCG PER DAY
  7. LOSARTAN POTASSIUM [Concomitant]
     Dosage: 50MG PER DAY
  8. METFORMIN HYDROCHLORIDE [Concomitant]
     Dosage: 1700MG PER DAY
  9. OMEPRAZOLE [Concomitant]
     Dosage: 20MG PER DAY
  10. PAROXETINE HCL [Concomitant]
  11. SIMVASTATIN [Concomitant]
     Dosage: 40MG PER DAY
  12. UNKNOWN [Concomitant]
     Dosage: 5MG PER DAY
  13. TRAMADOL HCL [Concomitant]

REACTIONS (1)
  - VISUAL DISTURBANCE [None]
